FAERS Safety Report 8861316 (Version 2)
Quarter: 2012Q4

REPORT INFORMATION
  Report Type: 
  Country: US (occurrence: US)
  Receive Date: 20121026
  Receipt Date: 20121207
  Transmission Date: 20130627
  Serious: No
  Sender: FDA-Public Use
  Company Number: US-PFIZER INC-2012265894

PATIENT
  Age: 63 Year
  Sex: Female

DRUGS (2)
  1. MEDROL [Suspect]
     Dosage: UNK
  2. CYCLOBENZAPRINE HCL [Suspect]
     Dosage: UNK

REACTIONS (2)
  - Drug hypersensitivity [Unknown]
  - Pruritus [Unknown]
